FAERS Safety Report 21242161 (Version 1)
Quarter: 2022Q3

REPORT INFORMATION
  Report Type: Report from Study
  Country: JP (occurrence: US)
  Receive Date: 20220823
  Receipt Date: 20220823
  Transmission Date: 20221026
  Serious: Yes (Other)
  Sender: FDA-Public Use
  Company Number: JP-SUN PHARMACEUTICAL INDUSTRIES LTD-2022R1-351758

PATIENT
  Age: 28 Year
  Sex: Female

DRUGS (3)
  1. ASPIRIN [Suspect]
     Active Substance: ASPIRIN
     Indication: Coagulopathy
     Dosage: UNK
     Route: 065
  2. LATANOPROST [Suspect]
     Active Substance: LATANOPROST
     Indication: Ocular hypertension
     Dosage: UNK
     Route: 047
  3. HEPARIN [Suspect]
     Active Substance: HEPARIN SODIUM
     Indication: Coagulopathy
     Dosage: UNK
     Route: 065

REACTIONS (6)
  - Abortion [Unknown]
  - Exposure during pregnancy [Unknown]
  - Foetal death [Unknown]
  - Coagulopathy [Unknown]
  - Thrombosis [Unknown]
  - Haemorrhage [Unknown]
